FAERS Safety Report 10261258 (Version 1)
Quarter: 2014Q2

REPORT INFORMATION
  Report Type: Spontaneous
  Country: US (occurrence: None)
  Receive Date: 20140623
  Receipt Date: 20140623
  Transmission Date: 20141212
  Serious: Yes (Other)
  Sender: FDA-Public Use
  Company Number: 2014US00557

PATIENT
  Sex: 0

DRUGS (3)
  1. IRINOTECAN [Suspect]
     Dosage: 20 MG/ML SOLUTION ON DAYS 1-5 OF EACH CYCLE
  2. TEMSIROLIMUS [Suspect]
     Dosage: 15 MG/M2 DOSE GIVEN ON DAYS 1 AND 8, INTRAVENOUS
     Route: 042
  3. TEMOZOLOMIDE [Suspect]
     Route: 048

REACTIONS (3)
  - Pulmonary function test decreased [None]
  - Incorrect route of drug administration [None]
  - Lung disorder [None]
